FAERS Safety Report 5788087-5 (Version None)
Quarter: 2008Q2

REPORT INFORMATION
  Report Type: 
  Country: None (occurrence: None)
  Receive Date: 20080625
  Receipt Date: 20080617
  Transmission Date: 20081010
  Serious: Yes (Other)
  Sender: FDA-Public Use
  Company Number: US-SANOFI-SYNTHELABO-A03200801467

PATIENT
  Sex: Male
  Weight: 70.3 kg

DRUGS (6)
  1. CORTISONE ACETATE [Concomitant]
     Indication: DRUG USE FOR UNKNOWN INDICATION
     Dosage: UNK
     Route: 065
  2. PROTONIX [Concomitant]
     Indication: HYPERCHLORHYDRIA
     Dosage: UNK
     Route: 065
     Dates: start: 20080214, end: 20080415
  3. AMBIEN CR [Suspect]
     Indication: SLEEP DISORDER
     Route: 048
     Dates: start: 20070410, end: 20070715
  4. AMBIEN CR [Suspect]
     Dosage: UNK
     Route: 048
     Dates: start: 20080101, end: 20080201
  5. AMBIEN CR [Suspect]
     Route: 048
     Dates: start: 20080214, end: 20080316
  6. ALCOHOL [Concomitant]
     Indication: DRUG USE FOR UNKNOWN INDICATION
     Dosage: SLEEP DRINKING
     Route: 048

REACTIONS (9)
  - ABNORMAL BEHAVIOUR [None]
  - AGITATION [None]
  - AMNESIA [None]
  - DRUG INEFFECTIVE [None]
  - FEELING ABNORMAL [None]
  - HALLUCINATION, VISUAL [None]
  - PSYCHOTIC DISORDER [None]
  - SLEEP-RELATED EATING DISORDER [None]
  - SUICIDAL IDEATION [None]
